FAERS Safety Report 5306835-5 (Version None)
Quarter: 2007Q2

REPORT INFORMATION
  Report Type: 
  Country: None (occurrence: None)
  Receive Date: 20070420
  Receipt Date: 20070420
  Transmission Date: 20071010
  Serious: Yes (Other)
  Sender: FDA-Public Use
  Company Number: None

PATIENT
  Sex: Male
  Weight: 107.0489 kg

DRUGS (7)
  1. HYDROXYCHLOROQUINE [Suspect]
     Indication: RHEUMATOID ARTHRITIS
     Dosage: 200MG TWICE QD
     Dates: start: 19990101, end: 20050101
  2. METHOTREXATE [Concomitant]
  3. PREDNISONE TAB [Concomitant]
  4. FOLIC ACID [Concomitant]
  5. CELEBREX [Concomitant]
  6. AZULFIDINE [Concomitant]
  7. SYNTHROID [Concomitant]

REACTIONS (2)
  - RETINAL PIGMENT EPITHELIOPATHY [None]
  - SCOTOMA [None]
